FAERS Safety Report 8239458-9 (Version None)
Quarter: 2012Q1

REPORT INFORMATION
  Report Type: 
  Country: None (occurrence: None)
  Receive Date: 20120328
  Receipt Date: 20120321
  Transmission Date: 20120608
  Serious: Yes (Hospitalization)
  Sender: FDA-Public Use
  Company Number: GB-US-EMD SERONO, INC.-7084059

PATIENT
  Sex: Female

DRUGS (2)
  1. UNSPECIFIED TABLET [Concomitant]
     Indication: TYPE 2 DIABETES MELLITUS
  2. REBIF [Suspect]
     Indication: RELAPSING-REMITTING MULTIPLE SCLEROSIS
     Route: 058
     Dates: start: 20110103

REACTIONS (4)
  - HEADACHE [None]
  - HYPOGLYCAEMIA [None]
  - PITUITARY TUMOUR RECURRENT [None]
  - VOMITING [None]
